FAERS Safety Report 23108975 (Version 1)
Quarter: 2023Q4

REPORT INFORMATION
  Report Type: Spontaneous
  Country: US (occurrence: US)
  Receive Date: 20231026
  Receipt Date: 20231026
  Transmission Date: 20240110
  Serious: Yes (Death, Life-Threatening, Hospitalization)
  Sender: FDA-Public Use
  Company Number: US-STRIDES ARCOLAB LIMITED-2023SP015940

PATIENT
  Age: 44 Year
  Sex: Male

DRUGS (2)
  1. PREDNISOLONE [Suspect]
     Active Substance: PREDNISOLONE
     Indication: Gout
     Dosage: UNK
     Route: 065
  2. DOXYCYCLINE [Suspect]
     Active Substance: DOXYCYCLINE
     Indication: Q fever
     Dosage: UNK
     Route: 065

REACTIONS (6)
  - Death [Fatal]
  - Respiratory failure [Unknown]
  - Pneumocystis jirovecii pneumonia [Unknown]
  - Q fever [Unknown]
  - Systemic candida [Unknown]
  - Septic shock [Unknown]
